FAERS Safety Report 12681098 (Version 5)
Quarter: 2016Q4

REPORT INFORMATION
  Report Type: Report from Study
  Country: US (occurrence: US)
  Receive Date: 20160824
  Receipt Date: 20161129
  Transmission Date: 20170207
  Serious: Yes (Hospitalization, Other)
  Sender: FDA-Public Use
  Company Number: PHEH2016US021302

PATIENT
  Age: 70 Year
  Sex: Female
  Weight: 58.38 kg

DRUGS (2)
  1. AFINITOR [Suspect]
     Active Substance: EVEROLIMUS
     Indication: RENAL CELL CARCINOMA
     Dosage: 5 MG, QD
     Route: 048
     Dates: start: 20160714
  2. AFINITOR [Suspect]
     Active Substance: EVEROLIMUS
     Dosage: 10 MG, QD
     Route: 048
     Dates: start: 20160822, end: 20161123

REACTIONS (11)
  - Diarrhoea [Not Recovered/Not Resolved]
  - Dry eye [Unknown]
  - Abdominal pain upper [Unknown]
  - Dyspnoea [Unknown]
  - Dry throat [Unknown]
  - Fatigue [Unknown]
  - Pneumonia [Unknown]
  - Tremor [Unknown]
  - Epistaxis [Unknown]
  - Malignant neoplasm progression [Unknown]
  - Vision blurred [Unknown]

NARRATIVE: CASE EVENT DATE: 20161123
